FAERS Safety Report 12675330 (Version 3)
Quarter: 2017Q1

REPORT INFORMATION
  Report Type: Report from Study
  Country: US (occurrence: US)
  Receive Date: 20160822
  Receipt Date: 20170308
  Transmission Date: 20170428
  Serious: Yes (Death, Life-Threatening, Hospitalization, Other)
  Sender: FDA-Public Use
  Company Number: US-009507513-1608USA009149

PATIENT
  Age: 59 Year
  Sex: Male
  Weight: 71.4 kg

DRUGS (9)
  1. ONDANSETRON [Concomitant]
     Active Substance: ONDANSETRON
     Indication: NAUSEA
  2. LORAZEPAM. [Concomitant]
     Active Substance: LORAZEPAM
     Indication: ANXIETY
  3. DEXAMETHASONE. [Suspect]
     Active Substance: DEXAMETHASONE
     Dosage: 24 MG, DAY 1-5 EVERY OTHER WEEK
     Route: 048
     Dates: start: 20160812, end: 20160816
  4. ACYCLOVIR. [Concomitant]
     Active Substance: ACYCLOVIR
  5. OXYCODONE [Concomitant]
     Active Substance: OXYCODONE
  6. TEMAZEPAM. [Concomitant]
     Active Substance: TEMAZEPAM
  7. ALLOPURINOL. [Concomitant]
     Active Substance: ALLOPURINOL
  8. PANTOPRAZOLE [Concomitant]
     Active Substance: PANTOPRAZOLE SODIUM
  9. DEXAMETHASONE. [Suspect]
     Active Substance: DEXAMETHASONE
     Indication: T-CELL TYPE ACUTE LEUKAEMIA
     Dosage: 24 MG, DAY 1-5 EVERY OTHER WEEK
     Route: 048
     Dates: start: 20160729, end: 20160808

REACTIONS (8)
  - Pneumonia [Fatal]
  - Febrile neutropenia [Recovered/Resolved]
  - Dehydration [Unknown]
  - Neutropenia [Recovered/Resolved]
  - Anaemia [Unknown]
  - Muscular weakness [Recovered/Resolved]
  - Hypotension [Unknown]
  - Sepsis [Unknown]

NARRATIVE: CASE EVENT DATE: 20160729
